FAERS Safety Report 8941484 (Version 2)
Quarter: 2012Q4

REPORT INFORMATION
  Report Type: 
  Country: DE (occurrence: DE)
  Receive Date: 20121203
  Receipt Date: 20121219
  Transmission Date: 20130627
  Serious: Yes (Hospitalization)
  Sender: FDA-Public Use
  Company Number: DE-JNJFOC-20121105557

PATIENT
  Age: 53 Year
  Sex: Female

DRUGS (6)
  1. XARELTO [Suspect]
     Indication: TRANSIENT ISCHAEMIC ATTACK
     Route: 048
  2. XARELTO [Suspect]
     Indication: CEREBROVASCULAR ACCIDENT PROPHYLAXIS
     Route: 048
  3. XARELTO [Suspect]
     Indication: ATRIAL FIBRILLATION
     Route: 048
  4. RAMIPRIL [Concomitant]
     Route: 065
  5. METFORMIN [Concomitant]
     Route: 065
  6. CORVO [Concomitant]
     Route: 065

REACTIONS (7)
  - Postmenopausal haemorrhage [Unknown]
  - Cardiovascular disorder [Unknown]
  - Anaemia [Unknown]
  - Menorrhagia [Unknown]
  - Apathy [Unknown]
  - Asthenia [Unknown]
  - Dyspnoea exertional [Unknown]
